FAERS Safety Report 21714699 (Version 1)
Quarter: 2022Q4

REPORT INFORMATION
  Report Type: Spontaneous
  Country: US (occurrence: US)
  Receive Date: 20221212
  Receipt Date: 20221212
  Transmission Date: 20230113
  Serious: Yes (Other)
  Sender: FDA-Public Use
  Company Number: US-UPSHER-SMITH LABORATORIES, LLC-2022USL00950

PATIENT
  Age: 35 Year
  Sex: Male

DRUGS (1)
  1. TESTOSTERONE [Suspect]
     Active Substance: TESTOSTERONE
     Indication: Hypogonadism male
     Route: 030

REACTIONS (1)
  - Intracranial pressure increased [Recovering/Resolving]
